FAERS Safety Report 9181558 (Version 2)
Quarter: 2013Q2

REPORT INFORMATION
  Report Type: Spontaneous
  Country: JP (occurrence: JP)
  Receive Date: 20130322
  Receipt Date: 20130410
  Transmission Date: 20140414
  Serious: Yes (Other)
  Sender: FDA-Public Use
  Company Number: JP-JNJFOC-20130307159

PATIENT
  Age: 71 Year
  Sex: Female

DRUGS (5)
  1. INVEGA [Suspect]
     Indication: SCHIZOPHRENIA
     Route: 048
     Dates: start: 201108, end: 20121202
  2. SEROQUEL [Concomitant]
     Route: 048
  3. BENZALIN [Concomitant]
     Route: 048
     Dates: end: 20121202
  4. AMOBAN [Concomitant]
     Route: 048
     Dates: end: 20121202
  5. GASMOTIN [Concomitant]
     Route: 048
     Dates: end: 20121202

REACTIONS (2)
  - Liver disorder [Recovered/Resolved]
  - Drug eruption [Recovered/Resolved]
